FAERS Safety Report 7291304-6 (Version None)
Quarter: 2011Q1

REPORT INFORMATION
  Report Type: 
  Country: None (occurrence: None)
  Receive Date: 20110214
  Receipt Date: 20110204
  Transmission Date: 20110831
  Serious: Yes (Other)
  Sender: FDA-Public Use
  Company Number: A0834696A

PATIENT
  Age: 55 Year
  Sex: Female

DRUGS (8)
  1. INTERFERON ALFA [Concomitant]
     Indication: IDIOPATHIC THROMBOCYTOPENIC PURPURA
  2. PEGASYS [Concomitant]
  3. PROMACTA [Suspect]
     Indication: IDIOPATHIC THROMBOCYTOPENIC PURPURA
     Dosage: 75MG PER DAY
     Route: 048
     Dates: start: 20090122, end: 20090617
  4. CORTICOSTEROIDS [Concomitant]
     Indication: IDIOPATHIC THROMBOCYTOPENIC PURPURA
  5. TRIAL MEDICATION [Concomitant]
     Indication: IDIOPATHIC THROMBOCYTOPENIC PURPURA
  6. LEXAPRO [Concomitant]
  7. IMMUNE GLOBULIN INTRAVENOUS (HUMAN) [Concomitant]
     Indication: IDIOPATHIC THROMBOCYTOPENIC PURPURA
  8. RITUXIMAB [Concomitant]
     Indication: IDIOPATHIC THROMBOCYTOPENIC PURPURA

REACTIONS (3)
  - BONE MARROW RETICULIN FIBROSIS [None]
  - HEPATITIS C [None]
  - DRUG INEFFECTIVE [None]
